FAERS Safety Report 5930218-8 (Version None)
Quarter: 2008Q4

REPORT INFORMATION
  Report Type: 
  Country: None (occurrence: None)
  Receive Date: 20081024
  Receipt Date: 20081010
  Transmission Date: 20090506
  Serious: Yes (Hospitalization)
  Sender: FDA-Public Use
  Company Number: FR-GENENTECH-268981

PATIENT
  Sex: Male

DRUGS (10)
  1. RITUXIMAB [Suspect]
     Indication: DIFFUSE LARGE B-CELL LYMPHOMA
     Dosage: 785 MG, UNK
     Route: 042
     Dates: start: 20080723
  2. RITUXIMAB [Suspect]
     Dosage: 735 MG, UNK
     Dates: start: 20080910, end: 20081007
  3. CYCLOPHOSPHAMIDE [Suspect]
     Indication: NON-HODGKIN'S LYMPHOMA
     Dosage: 1570 MG, UNK
     Route: 043
     Dates: start: 20080723
  4. CYCLOPHOSPHAMIDE [Suspect]
     Dosage: 1470 MG, UNK
     Dates: start: 20080910, end: 20081007
  5. VINCRISTINE [Suspect]
     Indication: NON-HODGKIN'S LYMPHOMA
     Dosage: 2 MG, UNK
     Route: 042
     Dates: start: 20080723, end: 20081007
  6. DOXORUBICIN HCL [Suspect]
     Indication: NON-HODGKIN'S LYMPHOMA
     Dosage: 105 MG, UNK
     Route: 042
     Dates: start: 20080723
  7. DOXORUBICIN HCL [Suspect]
     Dosage: 98 MG, UNK
     Dates: start: 20080910, end: 20081007
  8. PREDNISONE TAB [Suspect]
     Indication: NON-HODGKIN'S LYMPHOMA
     Dosage: 85 MG, UNK
     Route: 048
     Dates: start: 20080723
  9. PREDNISONE TAB [Suspect]
     Dosage: 80 MG, UNK
     Dates: start: 20080911, end: 20081007
  10. METHOTREXATE [Suspect]
     Indication: NON-HODGKIN'S LYMPHOMA
     Dosage: 15 MG, UNK
     Route: 042
     Dates: start: 20080724, end: 20081007

REACTIONS (1)
  - FEBRILE BONE MARROW APLASIA [None]
